FAERS Safety Report 8693529 (Version 2)
Quarter: 2012Q4

REPORT INFORMATION
  Report Type: 
  Country: NL (occurrence: NL)
  Receive Date: 20120730
  Receipt Date: 20120912
  Transmission Date: 20130627
  Serious: Yes (Other)
  Sender: FDA-Public Use
  Company Number: NL-ELI_LILLY_AND_COMPANY-NL201207005554

PATIENT
  Sex: Male

DRUGS (5)
  1. BYDUREON [Suspect]
     Indication: TYPE 2 DIABETES MELLITUS
     Dosage: 2 mg, weekly (1/W)
     Route: 058
     Dates: start: 201203, end: 201206
  2. ASCAL [Concomitant]
     Dosage: 80 mg, qd
     Route: 048
  3. HYDROCHLOROTHIAZIDE [Concomitant]
     Dosage: 25 mg, qd
     Route: 048
  4. ENALAPRIL [Concomitant]
     Dosage: 20 mg, bid
     Route: 048
  5. VARDENAFIL [Concomitant]
     Dosage: 1 DF, prn

REACTIONS (4)
  - Weight decreased [Unknown]
  - Faeces hard [Recovering/Resolving]
  - Injection site extravasation [Unknown]
  - Injection site nodule [Unknown]
